FAERS Safety Report 22373587 (Version 1)
Quarter: 2023Q2

REPORT INFORMATION
  Report Type: Spontaneous
  Country: US (occurrence: US)
  Receive Date: 20230526
  Receipt Date: 20230526
  Transmission Date: 20230722
  Serious: No
  Sender: FDA-Public Use
  Company Number: US-ABBVIE-4770122

PATIENT
  Age: 46 Year
  Sex: Male
  Weight: 113.39 kg

DRUGS (2)
  1. HUMIRA [Suspect]
     Active Substance: ADALIMUMAB
     Indication: Rheumatoid arthritis
     Dosage: FORM STRENGTH: 40  MILLIGRAM, TWO 40MG/0.4ML HUMIRA PENS SAME DAY
     Route: 058
     Dates: start: 20230516
  2. HUMIRA [Suspect]
     Active Substance: ADALIMUMAB
     Dosage: UNSUCCESSFUL INJECTION
     Route: 058
     Dates: start: 20230516, end: 20230516

REACTIONS (3)
  - Device use error [Unknown]
  - Injection site haemorrhage [Recovered/Resolved]
  - Incorrect dose administered [Unknown]

NARRATIVE: CASE EVENT DATE: 20230516
